FAERS Safety Report 22630565 (Version 7)
Quarter: 2024Q1

REPORT INFORMATION
  Report Type: Spontaneous
  Country: DE (occurrence: DE)
  Receive Date: 20230622
  Receipt Date: 20240223
  Transmission Date: 20240409
  Serious: Yes (Other)
  Sender: FDA-Public Use
  Company Number: DE-ABBVIE-5291261

PATIENT
  Age: 26 Year
  Sex: Female
  Weight: 47 kg

DRUGS (15)
  1. MINOCYCLINE HYDROCHLORIDE [Suspect]
     Active Substance: MINOCYCLINE HYDROCHLORIDE
     Indication: Product used for unknown indication
     Route: 065
  2. MINOCYCLINE HYDROCHLORIDE [Suspect]
     Active Substance: MINOCYCLINE HYDROCHLORIDE
  3. CHLORPROMAZINE [Suspect]
     Active Substance: CHLORPROMAZINE
     Indication: Product used for unknown indication
     Route: 065
  4. HYDRALAZINE HYDROCHLORIDE [Suspect]
     Active Substance: HYDRALAZINE HYDROCHLORIDE
     Indication: Product used for unknown indication
     Route: 065
     Dates: start: 1954
  5. HUMIRA [Suspect]
     Active Substance: ADALIMUMAB
     Indication: Product used for unknown indication
     Route: 058
     Dates: start: 2010
  6. PROCAINAMIDE HYDROCHLORIDE [Suspect]
     Active Substance: PROCAINAMIDE HYDROCHLORIDE
     Indication: Product used for unknown indication
     Route: 065
  7. QUINIDINE BISULFATE [Suspect]
     Active Substance: QUINIDINE BISULFATE
     Indication: Product used for unknown indication
     Route: 065
  8. METHYLDOPA [Suspect]
     Active Substance: METHYLDOPA
     Indication: Product used for unknown indication
     Route: 065
  9. VORICONAZOLE [Suspect]
     Active Substance: VORICONAZOLE
     Indication: Product used for unknown indication
     Route: 065
  10. TERBINAFINE [Suspect]
     Active Substance: TERBINAFINE
     Indication: Product used for unknown indication
     Route: 065
  11. PROCAINAMIDE HYDROCHLORIDE [Suspect]
     Active Substance: PROCAINAMIDE HYDROCHLORIDE
     Indication: Product used for unknown indication
     Route: 065
  12. CHLORPROMAZINE HYDROCHLORIDE [Suspect]
     Active Substance: CHLORPROMAZINE HYDROCHLORIDE
     Indication: Product used for unknown indication
     Route: 065
  13. VORICONAZOLE [Suspect]
     Active Substance: VORICONAZOLE
     Indication: Product used for unknown indication
     Route: 065
  14. LAMISIL [Suspect]
     Active Substance: TERBINAFINE HYDROCHLORIDE
     Indication: Product used for unknown indication
     Route: 065
  15. HYDROXYCHLOROQUINE [Concomitant]
     Active Substance: HYDROXYCHLOROQUINE
     Indication: Product used for unknown indication

REACTIONS (45)
  - Polyserositis [Unknown]
  - Respiratory failure [Unknown]
  - Ileostomy [Unknown]
  - Proctectomy [Unknown]
  - Ileostomy closure [Unknown]
  - Ascites [Unknown]
  - Pouchitis [Recovering/Resolving]
  - Ileostomy [Unknown]
  - Ovarian failure [Unknown]
  - Systemic lupus erythematosus [Recovering/Resolving]
  - Colitis ulcerative [Recovering/Resolving]
  - Cardiac tamponade [Unknown]
  - Pleural effusion [Unknown]
  - Colectomy [Unknown]
  - Intestinal anastomosis [Unknown]
  - Proctectomy [Unknown]
  - Peritonitis [Unknown]
  - Atrial fibrillation [Unknown]
  - Antiphospholipid syndrome [Unknown]
  - Somatic symptom disorder [Unknown]
  - Premature menopause [Unknown]
  - Live birth [Unknown]
  - Venous thrombosis limb [Unknown]
  - Gliosis [Unknown]
  - Normal newborn [Unknown]
  - Ileostomy [Unknown]
  - Erythema [Unknown]
  - Depression [Unknown]
  - Fatigue [Unknown]
  - Atrial fibrillation [Unknown]
  - Photosensitivity reaction [Unknown]
  - Intestinal anastomosis [Unknown]
  - Frequent bowel movements [Not Recovered/Not Resolved]
  - Arthritis [Unknown]
  - Pain [Unknown]
  - Arthralgia [Unknown]
  - Infection [Unknown]
  - Myalgia [Unknown]
  - Lupus-like syndrome [Unknown]
  - Maternal exposure during pregnancy [Unknown]
  - Intervertebral disc protrusion [Unknown]
  - Cognitive disorder [Unknown]
  - Intervertebral disc protrusion [Unknown]
  - Erythema [Unknown]
  - Arthritis [Unknown]

NARRATIVE: CASE EVENT DATE: 20120101
